FAERS Safety Report 9646462 (Version 1)
Quarter: 2013Q4

REPORT INFORMATION
  Report Type: Report from Study
  Country: CO (occurrence: CO)
  Receive Date: 20131025
  Receipt Date: 20131025
  Transmission Date: 20140711
  Serious: Yes (Other)
  Sender: FDA-Public Use
  Company Number: CO-ABBVIE-13P-036-1161640-00

PATIENT
  Age: 74 Year
  Sex: Female
  Weight: 50 kg

DRUGS (6)
  1. HUMIRA [Suspect]
     Indication: ANKYLOSING SPONDYLITIS
     Route: 058
     Dates: start: 20130828
  2. CELECOXIB [Concomitant]
     Indication: PRODUCT USED FOR UNKNOWN INDICATION
  3. PREGABALIN [Concomitant]
     Indication: PRODUCT USED FOR UNKNOWN INDICATION
     Dosage: 1 TAB DAILY
  4. PREDNISOLONE [Concomitant]
     Indication: PRODUCT USED FOR UNKNOWN INDICATION
  5. CALCIUM CITRATE [Concomitant]
     Indication: PRODUCT USED FOR UNKNOWN INDICATION
  6. VITAMIN D NOS [Concomitant]
     Indication: PRODUCT USED FOR UNKNOWN INDICATION

REACTIONS (7)
  - Feeling cold [Recovering/Resolving]
  - Chest pain [Recovering/Resolving]
  - Hyperhidrosis [Recovering/Resolving]
  - Electrocardiogram ST segment elevation [Recovering/Resolving]
  - Coronary artery stenosis [Recovering/Resolving]
  - Diastolic dysfunction [Recovering/Resolving]
  - Coronary artery disease [Recovering/Resolving]
